FAERS Safety Report 11998966 (Version 2)
Quarter: 2016Q1

REPORT INFORMATION
  Report Type: Report from Study
  Country: DE (occurrence: DE)
  Receive Date: 20160203
  Receipt Date: 20160315
  Transmission Date: 20160526
  Serious: Yes (Death, Hospitalization)
  Sender: FDA-Public Use
  Company Number: DE-ROCHE-1597343

PATIENT
  Age: 74 Year
  Sex: Female
  Weight: 69 kg

DRUGS (3)
  1. CARBOPLATIN. [Suspect]
     Active Substance: CARBOPLATIN
     Indication: OVARIAN CANCER
     Dosage: LAST DOSE PRIOR TO SAE 27/OCT/2015
     Route: 065
     Dates: start: 20150625
  2. BEVACIZUMAB [Suspect]
     Active Substance: BEVACIZUMAB
     Indication: OVARIAN CANCER
     Dosage: LAST DOSE PRIOR TO SAE WAS 11/JAN/2016
     Route: 065
     Dates: start: 20150625
  3. GEMCITABINE [Suspect]
     Active Substance: GEMCITABINE\GEMCITABINE HYDROCHLORIDE
     Indication: OVARIAN CANCER
     Dosage: LAST DOSE PRIOR TO SAE WAS ADMINISTERED ON 27/OCT/2015
     Route: 065
     Dates: start: 20150625

REACTIONS (2)
  - General physical health deterioration [Recovered/Resolved]
  - General physical health deterioration [Fatal]

NARRATIVE: CASE EVENT DATE: 20160126
